FAERS Safety Report 8190018-8 (Version None)
Quarter: 2012Q1

REPORT INFORMATION
  Report Type: 
  Country: None (occurrence: None)
  Receive Date: 20120305
  Receipt Date: 20120227
  Transmission Date: 20120608
  Serious: Yes (Other)
  Sender: FDA-Public Use
  Company Number: 2012MA002658

PATIENT
  Age: 75 Year
  Sex: Female

DRUGS (4)
  1. MICONAZOLE NITRATE [Suspect]
     Indication: PRODUCT USED FOR UNKNOWN INDICATION
     Dosage: 500 MG, QD, PO
     Route: 048
  2. WARFARIN SODIUM [Suspect]
  3. DIGOXIN [Concomitant]
  4. FUROSEMIDE [Concomitant]

REACTIONS (4)
  - DRUG INTERACTION [None]
  - PETECHIAE [None]
  - ECCHYMOSIS [None]
  - INTERNATIONAL NORMALISED RATIO INCREASED [None]
